FAERS Safety Report 8786225 (Version 1)
Quarter: 2012Q4

REPORT INFORMATION
  Report Type: 
  Country: FR (occurrence: FR)
  Receive Date: 20120914
  Receipt Date: 20120914
  Transmission Date: 20130627
  Serious: Yes (Hospitalization)
  Sender: FDA-Public Use
  Company Number: FR-PFIZER INC-FR-WYE-G04529909

PATIENT
  Age: 22 Year
  Sex: Male

DRUGS (7)
  1. TAZOCILLINE [Suspect]
     Dosage: UNK
     Route: 042
     Dates: start: 20090803, end: 20090818
  2. ZYVOXID [Suspect]
     Dosage: 600 mg, 2x/day
     Route: 048
     Dates: start: 20090812, end: 20090819
  3. TRIFLUCAN [Suspect]
     Dosage: UNK
     Route: 065
     Dates: start: 20090806, end: 20090822
  4. AUGMENTIN ORAL [Suspect]
     Dosage: UNK
     Route: 048
     Dates: start: 20090725, end: 20090803
  5. CIFLOX [Suspect]
     Dosage: 400 mg strength; dose unknown
     Route: 042
     Dates: start: 20090803, end: 20090817
  6. FLAGYL [Suspect]
     Dosage: UNK
     Route: 065
     Dates: start: 20090729, end: 20090809
  7. FLAGYL [Suspect]
     Dosage: UNK
     Route: 065
     Dates: start: 20090818, end: 20090827

REACTIONS (6)
  - Jaundice cholestatic [Not Recovered/Not Resolved]
  - Abscess limb [Unknown]
  - Hepatosplenomegaly [Not Recovered/Not Resolved]
  - Aspartate aminotransferase increased [Not Recovered/Not Resolved]
  - Alanine aminotransferase increased [Not Recovered/Not Resolved]
  - Cholecystitis [Recovered/Resolved]
